FAERS Safety Report 6449426-5 (Version None)
Quarter: 2009Q4

REPORT INFORMATION
  Report Type: 
  Country: None (occurrence: None)
  Receive Date: 20091120
  Receipt Date: 20091116
  Transmission Date: 20100525
  Serious: Yes (Other)
  Sender: FDA-Public Use
  Company Number: US-JNJFOC-20090904385

PATIENT
  Sex: Female
  Weight: 75.3 kg

DRUGS (4)
  1. TAPENTADOL HYDROCHLORIDE [Suspect]
     Indication: COMPLEX REGIONAL PAIN SYNDROME
     Route: 048
     Dates: start: 20090811, end: 20090815
  2. DEPAKOTE [Concomitant]
     Indication: CONVULSION
  3. NEURONTIN [Concomitant]
     Indication: COMPLEX REGIONAL PAIN SYNDROME
     Route: 065
  4. CYMBALTA [Concomitant]
     Indication: COMPLEX REGIONAL PAIN SYNDROME
     Route: 065

REACTIONS (5)
  - ACTIVITIES OF DAILY LIVING IMPAIRED [None]
  - HALLUCINATION, VISUAL [None]
  - MEMORY IMPAIRMENT [None]
  - SEDATION [None]
  - THINKING ABNORMAL [None]
